FAERS Safety Report 8460727-1 (Version None)
Quarter: 2012Q2

REPORT INFORMATION
  Report Type: 
  Country: None (occurrence: None)
  Receive Date: 20120622
  Receipt Date: 20120618
  Transmission Date: 20120825
  Serious: No
  Sender: FDA-Public Use
  Company Number: US-PFIZER INC-2012113016

PATIENT
  Sex: Male
  Weight: 79 kg

DRUGS (3)
  1. BUSPAR [Concomitant]
     Indication: ANXIETY
     Dosage: UNK
     Dates: start: 20120301, end: 20120301
  2. SEROQUEL [Concomitant]
     Indication: MOOD ALTERED
     Dosage: 100 MG, UNK
     Dates: start: 20110401
  3. NEURONTIN [Suspect]
     Indication: SOCIAL PHOBIA
     Dosage: 300 MG, 2X/DAY
     Route: 048
     Dates: start: 20110301, end: 20120401

REACTIONS (5)
  - DEPRESSION [None]
  - LACRIMATION INCREASED [None]
  - EMOTIONAL DISORDER [None]
  - CRYING [None]
  - MOOD ALTERED [None]
